FAERS Safety Report 10130139 (Version 1)
Quarter: 2014Q2

REPORT INFORMATION
  Report Type: Spontaneous
  Country: US (occurrence: None)
  Receive Date: 20140425
  Receipt Date: 20140425
  Transmission Date: 20141212
  Serious: Yes (Other)
  Sender: FDA-Public Use
  Company Number: None

PATIENT
  Age: 6 Year
  Sex: Female
  Weight: 21.77 kg

DRUGS (2)
  1. MIRALAX [Suspect]
     Indication: POLLAKIURIA
     Dosage: 1 TABLESPPON ONCE DAILY TAKEN BY MOUTH
     Route: 048
     Dates: start: 20140215, end: 20140223
  2. MIRALAX [Suspect]
     Indication: CONSTIPATION
     Dosage: 1 TABLESPPON ONCE DAILY TAKEN BY MOUTH
     Route: 048
     Dates: start: 20140215, end: 20140223

REACTIONS (7)
  - Crying [None]
  - Aggression [None]
  - Abnormal behaviour [None]
  - Mania [None]
  - Obsessive-compulsive disorder [None]
  - Head banging [None]
  - Inappropriate affect [None]
